FAERS Safety Report 4485387-6 (Version None)
Quarter: 2004Q4

REPORT INFORMATION
  Report Type: 
  Country: None (occurrence: None)
  Receive Date: 20041026
  Receipt Date: 20041020
  Transmission Date: 20050328
  Serious: Yes (Life-Threatening, Hospitalization)
  Sender: FDA-Public Use
  Company Number: 200418050US

PATIENT
  Age: 55 Year
  Sex: Female

DRUGS (3)
  1. ARAVA [Suspect]
     Indication: RHEUMATOID ARTHRITIS
     Route: 048
     Dates: start: 20031101, end: 20040801
  2. METHOTREXATE [Concomitant]
     Dosage: DOSE: NOT PROVIDED
  3. HMG COA REDUCTASE INHIBITORS [Concomitant]
     Dosage: DOSE: NOT PROVIDED

REACTIONS (8)
  - COAGULOPATHY [None]
  - DRUG INEFFECTIVE [None]
  - ENCEPHALOPATHY [None]
  - HEPATIC FAILURE [None]
  - HEPATIC NECROSIS [None]
  - HEPATOMEGALY [None]
  - LIVER TRANSPLANT [None]
  - SPLENOMEGALY [None]
